FAERS Safety Report 9171934 (Version 1)
Quarter: 2013Q1

REPORT INFORMATION
  Report Type: Spontaneous
  Country: AR (occurrence: AR)
  Receive Date: 20130319
  Receipt Date: 20130319
  Transmission Date: 20140127
  Serious: Yes (Other)
  Sender: FDA-Public Use
  Company Number: AR-AMGEN-ARGSP2013018682

PATIENT
  Age: 64 Year
  Sex: Female

DRUGS (1)
  1. ENBREL [Suspect]
     Indication: RHEUMATOID ARTHRITIS
     Dosage: 50 MG, WEEKLY
     Dates: start: 20100825

REACTIONS (7)
  - VIIth nerve paralysis [Recovered/Resolved]
  - Eye disorder [Recovered/Resolved]
  - Eyelid disorder [Not Recovered/Not Resolved]
  - Ear pain [Recovered/Resolved]
  - Cerumen impaction [Recovered/Resolved]
  - Dyskinesia [Recovered/Resolved]
  - Viral infection [Recovered/Resolved]
